FAERS Safety Report 16063989 (Version 1)
Quarter: 2019Q1

REPORT INFORMATION
  Report Type: Spontaneous
  Country: US (occurrence: US)
  Receive Date: 20190312
  Receipt Date: 20190312
  Transmission Date: 20190418
  Serious: Yes (Life-Threatening, Other)
  Sender: FDA-Public Use
  Company Number: US-JNJFOC-20190313815

PATIENT

DRUGS (3)
  1. TRAMADOL HYDROCHLORIDE. [Suspect]
     Active Substance: TRAMADOL HYDROCHLORIDE
     Indication: PRODUCT USED FOR UNKNOWN INDICATION
     Route: 065
  2. TRAMADOL HYDROCHLORIDE AND ACETAMINOPHEN [Suspect]
     Active Substance: ACETAMINOPHEN\TRAMADOL HYDROCHLORIDE
     Indication: PRODUCT USED FOR UNKNOWN INDICATION
     Route: 065
  3. TRAMADOL HYDROCHLORIDE. [Suspect]
     Active Substance: TRAMADOL HYDROCHLORIDE
     Indication: PRODUCT USED FOR UNKNOWN INDICATION
     Route: 065

REACTIONS (29)
  - Hypertension [Unknown]
  - Vomiting [Unknown]
  - Confusional state [Unknown]
  - Respiratory depression [Unknown]
  - Hallucination [Unknown]
  - Bradycardia [Unknown]
  - Cyanosis [Unknown]
  - Delusion [Unknown]
  - Tremor [Unknown]
  - Product use issue [Unknown]
  - Tachycardia [Unknown]
  - Pruritus [Unknown]
  - Off label use [Unknown]
  - Accidental exposure to product by child [Unknown]
  - Seizure [Unknown]
  - Hypotension [Unknown]
  - Agitation [Unknown]
  - Lethargy [Unknown]
  - Mydriasis [Unknown]
  - Dystonia [Unknown]
  - Miosis [Unknown]
  - Somnolence [Unknown]
  - Dizziness [Unknown]
  - Irritability [Unknown]
  - Coma [Unknown]
  - Respiratory arrest [Unknown]
  - Ataxia [Unknown]
  - Hyperhidrosis [Unknown]
  - Product prescribing error [Unknown]
